FAERS Safety Report 13693913 (Version 11)
Quarter: 2020Q1

REPORT INFORMATION
  Report Type: Spontaneous
  Country: US (occurrence: US)
  Receive Date: 20170627
  Receipt Date: 20200117
  Transmission Date: 20200409
  Serious: Yes (Hospitalization, Other)
  Sender: FDA-Public Use
  Company Number: US-PFIZER INC-2016360645

PATIENT
  Age: 59 Year
  Sex: Female
  Weight: 89 kg

DRUGS (6)
  1. LYRICA [Suspect]
     Active Substance: PREGABALIN
     Indication: RECTAL CANCER
     Dosage: 50 MG, 3X/DAY
     Route: 048
     Dates: start: 20161115
  2. LYRICA [Suspect]
     Active Substance: PREGABALIN
     Dosage: 300 MG, DAILY (50 MG SIX TIMES DAILY)
     Dates: start: 2019
  3. LYRICA [Suspect]
     Active Substance: PREGABALIN
     Indication: NEUROPATHY PERIPHERAL
     Dosage: 50 MG, 3X/DAY
     Route: 048
  4. LYRICA [Suspect]
     Active Substance: PREGABALIN
     Indication: COLORECTAL CANCER
     Dosage: 150 MG, DAILY [ONCE IN THE AFTERNOON 50 MG, AND TWO 50 MG TABLETS AT NIGHT]
     Route: 048
     Dates: start: 2014
  5. NORTRIPTYLINE [Concomitant]
     Active Substance: NORTRIPTYLINE
     Indication: NEUROPATHY PERIPHERAL
     Dosage: 25 MG, 1X/DAY AT NIGHTTIME
     Dates: start: 201601
  6. LYRICA [Suspect]
     Active Substance: PREGABALIN
     Indication: POLYNEUROPATHY
     Dosage: 100 MG, 3X/DAY
     Route: 048
     Dates: start: 20190422, end: 2019

REACTIONS (6)
  - Pain [Unknown]
  - Intestinal obstruction [Unknown]
  - Product dose omission [Unknown]
  - Drug ineffective [Unknown]
  - Intentional product use issue [Unknown]
  - Mobility decreased [Unknown]

NARRATIVE: CASE EVENT DATE: 2014
